FAERS Safety Report 4432171-5 (Version None)
Quarter: 2004Q3

REPORT INFORMATION
  Report Type: 
  Country: None (occurrence: None)
  Receive Date: 20040820
  Receipt Date: 20040810
  Transmission Date: 20050211
  Serious: Yes (Hospitalization)
  Sender: FDA-Public Use
  Company Number: 2004217218JP

PATIENT
  Age: 55 Year
  Sex: Female

DRUGS (1)
  1. SOLU-CORTEF [Suspect]
     Indication: URTICARIA
     Dosage: IV
     Route: 042
     Dates: start: 20040527, end: 20040527

REACTIONS (1)
  - ANAPHYLACTIC SHOCK [None]
